FAERS Safety Report 6263988-2 (Version None)
Quarter: 2009Q3

REPORT INFORMATION
  Report Type: 
  Country: None (occurrence: None)
  Receive Date: 20090708
  Receipt Date: 20090708
  Transmission Date: 20100115
  Serious: No
  Sender: FDA-Public Use
  Company Number: None

PATIENT
  Age: 53 Year
  Sex: Female
  Weight: 63.05 kg

DRUGS (1)
  1. LIQUID NASAL GEL ZICAM [Suspect]
     Indication: NASOPHARYNGITIS
     Dosage: SWAB 2 X DAY MAX. NASAL
     Route: 045
     Dates: start: 20090305, end: 20090306

REACTIONS (2)
  - AGEUSIA [None]
  - ANOSMIA [None]
